FAERS Safety Report 24051549 (Version 4)
Quarter: 2024Q3

REPORT INFORMATION
  Report Type: Spontaneous
  Country: US (occurrence: US)
  Receive Date: 20240704
  Receipt Date: 20240916
  Transmission Date: 20241017
  Serious: No
  Sender: PFIZER
  Company Number: US-PFIZER INC-202400205760

PATIENT
  Age: 70 Year
  Sex: Male
  Weight: 89.36 kg

DRUGS (2)
  1. INLYTA [Suspect]
     Active Substance: AXITINIB
     Indication: Metastatic renal cell carcinoma
     Dosage: 5MG AND HE WOULD TAKE IT EVERY 12 HOURS
     Route: 048
     Dates: start: 20240311, end: 202406
  2. INLYTA [Suspect]
     Active Substance: AXITINIB
     Dosage: 5 MG TABLET, 1 TABLET DAILY WITH PLENTY OF WATER
     Route: 048

REACTIONS (2)
  - Diarrhoea [Recovered/Resolved]
  - Off label use [Unknown]

NARRATIVE: CASE EVENT DATE: 20240601
